FAERS Safety Report 23142823 (Version 1)
Quarter: 2023Q4

REPORT INFORMATION
  Report Type: Spontaneous
  Country: US (occurrence: None)
  Receive Date: 20231102
  Receipt Date: 20231102
  Transmission Date: 20240109
  Serious: Yes (Life-Threatening, Hospitalization, Disabling, Other)
  Sender: FDA-Public Use
  Company Number: None

PATIENT
  Age: 59 Year
  Sex: Male

DRUGS (14)
  1. LUPRON DEPOT [Suspect]
     Active Substance: LEUPROLIDE ACETATE
  2. HEARTMATE 3 BUMETANIDE (BUMEX) [Concomitant]
  3. COREG [Concomitant]
     Active Substance: CARVEDILOL
  4. EMPAGLIFOZIN (JARDIANCE) [Concomitant]
  5. OMEPRAZOLE DR (PRILOSEC) [Concomitant]
  6. POTASSIUM CHLORIDE SR (K-DUR) [Concomitant]
  7. CRESTOR [Concomitant]
     Active Substance: ROSUVASTATIN CALCIUM
  8. SACUBITRIL-VALSARTAN (ENTRESTO) [Concomitant]
  9. EFFEXOR XR [Concomitant]
     Active Substance: VENLAFAXINE HYDROCHLORIDE
  10. COUMADIN [Concomitant]
     Active Substance: WARFARIN SODIUM
  11. ASPIRIN EC (ASPIR-LOW) [Concomitant]
  12. VITAMIN D3 [Concomitant]
     Active Substance: CHOLECALCIFEROL
  13. COLACE [Concomitant]
     Active Substance: DOCUSATE SODIUM
  14. MAGNESIUM OXIDE (MAGOX) [Concomitant]

REACTIONS (2)
  - Cardiomyopathy [None]
  - Ejection fraction decreased [None]

NARRATIVE: CASE EVENT DATE: 20230225
